FAERS Safety Report 9914182 (Version 2)
Quarter: 2014Q1

REPORT INFORMATION
  Report Type: Report from Study
  Country: JP (occurrence: JP)
  Receive Date: 20140220
  Receipt Date: 20140220
  Transmission Date: 20141002
  Serious: Yes (Hospitalization)
  Sender: FDA-Public Use
  Company Number: JP-NOVOPROD-400391

PATIENT
  Age: 71 Year
  Sex: Male
  Weight: 65.5 kg

DRUGS (24)
  1. LIRAGLUTIDE FLEXPEN [Suspect]
     Indication: TYPE 2 DIABETES MELLITUS
     Dosage: 0.3 MG, QD (MORNING)
     Dates: start: 20120411, end: 20120413
  2. LIRAGLUTIDE FLEXPEN [Suspect]
     Dosage: 0.6 MG QD
     Dates: start: 20120414, end: 20120417
  3. LIRAGLUTIDE FLEXPEN [Suspect]
     Dosage: 0.9 MG, QD
     Dates: start: 20120418, end: 20130306
  4. LIRAGLUTIDE FLEXPEN [Suspect]
     Dosage: 0.6 MG, QD
     Dates: start: 20130307, end: 20131218
  5. NOVORAPID 30 MIX CHU [Concomitant]
     Indication: TYPE 2 DIABETES MELLITUS
     Dosage: 14 IU, QD
     Route: 065
     Dates: end: 20120410
  6. NOVORAPID 30 MIX CHU [Concomitant]
     Dosage: 4 U, QD
     Route: 065
     Dates: start: 20120411, end: 20120411
  7. NOVORAPID 30 MIX CHU [Concomitant]
     Dosage: 6 U, QD
     Route: 065
     Dates: start: 20120412, end: 20120412
  8. NOVORAPID 30 MIX CHU [Concomitant]
     Dosage: 4 U, QD
     Route: 065
     Dates: start: 20120413, end: 20120414
  9. BAYASPIRIN [Concomitant]
     Dosage: UNK
     Route: 048
  10. TAKEPRON [Concomitant]
     Route: 048
  11. FLIVAS [Concomitant]
     Route: 048
  12. MICARDIS [Concomitant]
     Route: 048
  13. WARFARIN POTASSIUM [Concomitant]
     Route: 048
  14. LASIX                              /00032601/ [Concomitant]
     Route: 048
  15. CARDENALIN [Concomitant]
     Route: 048
  16. LIPITOR [Concomitant]
     Route: 048
  17. PLETAAL [Concomitant]
     Route: 048
  18. MAGMITT [Concomitant]
     Route: 048
  19. ZYLORIC [Concomitant]
     Route: 048
  20. SIGMART [Concomitant]
     Route: 048
  21. HOKUNALIN                          /00654901/ [Concomitant]
     Route: 062
  22. FERROMIA [Concomitant]
     Route: 048
  23. NESP [Concomitant]
     Route: 048
  24. MEXIBAL [Concomitant]
     Route: 048

REACTIONS (2)
  - Ileus paralytic [Recovering/Resolving]
  - Cardiac failure [Not Recovered/Not Resolved]
